FAERS Safety Report 7586999-3 (Version None)
Quarter: 2011Q3

REPORT INFORMATION
  Report Type: 
  Country: None (occurrence: None)
  Receive Date: 20110701
  Receipt Date: 20110623
  Transmission Date: 20111222
  Serious: Yes (Other)
  Sender: FDA-Public Use
  Company Number: PHFR2010GB03785

PATIENT
  Sex: Male

DRUGS (1)
  1. CLOZAPINE [Suspect]
     Indication: SCHIZOPHRENIA
     Dosage: 50 MG MANE, 200 MG NOCTE
     Route: 048
     Dates: start: 20040608

REACTIONS (5)
  - PLATELET COUNT DECREASED [None]
  - ANAEMIA [None]
  - LARGE INTESTINE PERFORATION [None]
  - WEIGHT DECREASED [None]
  - COLON CANCER [None]
